FAERS Safety Report 14980516 (Version 19)
Quarter: 2019Q4

REPORT INFORMATION
  Report Type: Spontaneous
  Country: US (occurrence: US)
  Receive Date: 20180606
  Receipt Date: 20191031
  Transmission Date: 20200122
  Serious: Yes (Death, Hospitalization)
  Sender: FDA-Public Use
  Company Number: US-ACTELION-A-US2018-173392

PATIENT
  Age: 59 Year
  Sex: Male
  Weight: 87.98 kg

DRUGS (5)
  1. ADCIRCA [Concomitant]
     Active Substance: TADALAFIL
  2. OPSUMIT [Suspect]
     Active Substance: MACITENTAN
     Indication: PULMONARY ARTERIAL HYPERTENSION
     Dosage: 10 MG, QD
     Route: 048
     Dates: start: 20180521
  3. ELIQUIS [Concomitant]
     Active Substance: APIXABAN
  4. LETAIRIS [Concomitant]
     Active Substance: AMBRISENTAN
  5. REMODULIN [Concomitant]
     Active Substance: TREPROSTINIL
     Dosage: 60 NG/KG, PER MIN
     Dates: start: 20181004

REACTIONS (24)
  - Vomiting [Unknown]
  - Decreased appetite [Unknown]
  - Catheter site rash [Not Recovered/Not Resolved]
  - Diarrhoea [Unknown]
  - Fatigue [Unknown]
  - Condition aggravated [Unknown]
  - Renal injury [Fatal]
  - Catheter site discolouration [Unknown]
  - Catheter site pruritus [Not Recovered/Not Resolved]
  - Right ventricular failure [Fatal]
  - Dyspnoea [Recovered/Resolved]
  - Swelling [Recovered/Resolved]
  - Pulmonary arterial hypertension [Unknown]
  - Abdominal discomfort [Unknown]
  - Nasal congestion [Unknown]
  - Catheter management [Recovered/Resolved]
  - Catheter site erythema [Unknown]
  - Device physical property issue [Unknown]
  - Nausea [Unknown]
  - Food allergy [Unknown]
  - Weight increased [Recovered/Resolved]
  - Catheter site irritation [Unknown]
  - Catheter site warmth [Unknown]
  - Malaise [Unknown]

NARRATIVE: CASE EVENT DATE: 20181102
